FAERS Safety Report 4729149-0 (Version None)
Quarter: 2005Q3

REPORT INFORMATION
  Report Type: 
  Country: None (occurrence: None)
  Receive Date: 20050729
  Receipt Date: 20040607
  Transmission Date: 20060218
  Serious: No
  Sender: FDA-Public Use
  Company Number: US-GLAXOSMITHKLINE-A0513629A

PATIENT
  Age: 56 Year
  Sex: Female

DRUGS (8)
  1. IMITREX [Suspect]
     Indication: MIGRAINE
     Dosage: 5MG THREE TIMES PER DAY
     Route: 048
  2. NARDIL [Concomitant]
  3. ALLEGRA [Concomitant]
  4. NORTRIPTYLINE HCL [Concomitant]
  5. SYNTHROID [Concomitant]
  6. ESTRADIOL PATCH [Concomitant]
  7. FIORICET [Concomitant]
  8. TRIAMTERENE AND HYDROCHLOROTHIAZIDE [Concomitant]

REACTIONS (1)
  - DRUG INEFFECTIVE [None]
